FAERS Safety Report 8799048 (Version 3)
Quarter: 2012Q4

REPORT INFORMATION
  Report Type: 
  Country: FR (occurrence: FR)
  Receive Date: 20120920
  Receipt Date: 20121218
  Transmission Date: 20130627
  Serious: Yes (Hospitalization, Other)
  Sender: FDA-Public Use
  Company Number: PHHY2012FR067589

PATIENT
  Age: 55 Year
  Sex: Female
  Weight: 70 kg

DRUGS (11)
  1. VANCOMYCIN SANDOZ [Suspect]
     Indication: MENINGITIS STAPHYLOCOCCAL
     Dosage: 3 g
     Route: 042
     Dates: start: 20120707, end: 20120717
  2. VANCOMYCIN SANDOZ [Suspect]
     Dosage: 1500 mg, for one hour
     Route: 042
     Dates: start: 20120713
  3. VANCOMYCIN SANDOZ [Suspect]
     Dosage: 4 g per 24 hrs
  4. CLAFORAN [Suspect]
  5. RIFAMPICIN [Concomitant]
     Dosage: 600 mg, BID
     Dates: start: 20120709
  6. URBANYL [Concomitant]
     Dosage: 1 DF, TID
  7. KEPPRA [Concomitant]
     Dosage: 1 DF, TID
  8. ESCITALOPRAM [Concomitant]
     Dosage: 1 DF, QD
  9. PARIET [Concomitant]
     Dosage: 1 DF, QD
  10. MOVICOL [Concomitant]
  11. LOVENOX [Concomitant]
     Dosage: 1 DF, QD
     Route: 058

REACTIONS (9)
  - Rash maculo-papular [Recovered/Resolved]
  - Pruritus [Recovered/Resolved]
  - Urticaria [Recovered/Resolved]
  - Pyrexia [Recovered/Resolved]
  - Hemiparesis [Unknown]
  - Asthenia [Unknown]
  - Constipation [Unknown]
  - Productive cough [Unknown]
  - Incorrect drug administration duration [Unknown]
